FAERS Safety Report 23205931 (Version 2)
Quarter: 2024Q1

REPORT INFORMATION
  Report Type: Report from Study
  Country: US (occurrence: US)
  Receive Date: 20231120
  Receipt Date: 20240116
  Transmission Date: 20240410
  Serious: Yes (Hospitalization)
  Sender: FDA-Public Use
  Company Number: US-ABBVIE-5498413

PATIENT
  Age: 85 Year
  Sex: Male

DRUGS (2)
  1. HUMIRA [Suspect]
     Active Substance: ADALIMUMAB
     Indication: Rheumatoid arthritis
     Dosage: FORM STRENGTH: 40 MILLIGRAM?CITRATE FREE
     Route: 058
     Dates: start: 20180509
  2. LASIX [Concomitant]
     Active Substance: FUROSEMIDE
     Indication: Oedema
     Dates: start: 20231225

REACTIONS (8)
  - Foot fracture [Recovering/Resolving]
  - Musculoskeletal disorder [Unknown]
  - Oedema peripheral [Recovered/Resolved]
  - Transient ischaemic attack [Recovering/Resolving]
  - Dysstasia [Unknown]
  - Fall [Recovering/Resolving]
  - Musculoskeletal disorder [Unknown]
  - Feeling abnormal [Unknown]

NARRATIVE: CASE EVENT DATE: 20231015
